FAERS Safety Report 13560079 (Version 2)
Quarter: 2017Q3

REPORT INFORMATION
  Report Type: Spontaneous
  Country: US (occurrence: US)
  Receive Date: 20170518
  Receipt Date: 20170818
  Transmission Date: 20171127
  Serious: Yes (Other)
  Sender: FDA-Public Use
  Company Number: US-PFIZER INC-2017211125

PATIENT
  Age: 59 Year
  Sex: Female
  Weight: 66.7 kg

DRUGS (17)
  1. ZESTRIL [Concomitant]
     Active Substance: LISINOPRIL
     Dosage: 5 MG, DAILY
     Route: 048
  2. ZOLOFT [Concomitant]
     Active Substance: SERTRALINE HYDROCHLORIDE
     Dosage: 100 MG, DAILY
     Route: 048
  3. LYRICA [Suspect]
     Active Substance: PREGABALIN
     Indication: CERVICAL RADICULOPATHY
     Dosage: 50 MG, UNK
  4. IMODIUM [Concomitant]
     Active Substance: LOPERAMIDE HYDROCHLORIDE
     Indication: DIARRHOEA
     Dosage: 2 MG, AS NEEDED [1 CAPSULE BY MOUTH 4 (FOUR) TIMES DAILY AS NEEDED]
     Route: 048
     Dates: start: 20170502
  5. LYRICA [Suspect]
     Active Substance: PREGABALIN
     Indication: NECK PAIN
     Dosage: 75 MG, UNK
  6. PROVENTIL [Concomitant]
     Active Substance: ALBUTEROL
     Dosage: 2.5 MG, 3X/DAY [2.5 MG/0.5 ML NEBU]
  7. NORCO [Concomitant]
     Active Substance: ACETAMINOPHEN\HYDROCODONE BITARTRATE
     Indication: PAIN
     Dosage: 1 DF, AS NEEDED [HYDROCODONE 7.5 MG]/[ACETAMINOPHEN 325 MG] [TAKE 1 TABLET, EVERY 8 HOURS]
     Route: 048
  8. ANORO ELLIPTA [Concomitant]
     Active Substance: UMECLIDINIUM BROMIDE\VILANTEROL TRIFENATATE
     Dosage: UNK UNK, DAILY [UMECLIDINIUM 62.5 MCG]/[VILANTEROL 25 MCG] [ALE 1 PUFF INTO THE LUNGS]
     Route: 055
  9. LIDEX [Concomitant]
     Active Substance: FLUOCINONIDE
     Dosage: UNK UNK, 2X/DAY
     Route: 061
  10. PRINIVIL [Concomitant]
     Active Substance: LISINOPRIL
     Dosage: 5 MG, DAILY
     Route: 048
  11. BREO ELLIPTA [Concomitant]
     Active Substance: FLUTICASONE FUROATE\VILANTEROL TRIFENATATE
     Dosage: UNK UNK, DAILY [FLUTICASONE 100 MCG]/[VILANTEROL 25MCG] [HALE 1 PUFF INTO THE LUNGS]
     Route: 055
     Dates: start: 20170501
  12. LYRICA [Suspect]
     Active Substance: PREGABALIN
     Indication: BACK PAIN
     Dosage: 50 MG, 2X/DAY
  13. VENTOLIN [Concomitant]
     Active Substance: ALBUTEROL SULFATE
     Dosage: 2.5 MG, 3X/DAY [2.5 MG/0.5 ML NEBU]
  14. VALIUM [Concomitant]
     Active Substance: DIAZEPAM
     Indication: ANXIETY
     Dosage: 10 MG, AS NEEDED [1 TABLET BY MOUTH EVERY 8 (EIGHT) HOURS AS NEEDED]
     Route: 048
  15. LYRICA [Suspect]
     Active Substance: PREGABALIN
     Indication: RADICULOPATHY
     Dosage: 50 MG, DAILY
     Dates: start: 20160301
  16. MAXZIDE [Concomitant]
     Active Substance: HYDROCHLOROTHIAZIDE\TRIAMTERENE
     Dosage: 1 DF, DAILY [TRIAMTERENE 37.5 MG]/[HYDROCHLOROTHIAZIDE 25 MG]
     Route: 048
  17. NICODERM CQ [Concomitant]
     Active Substance: NICOTINE
     Dosage: UNK UNK, DAILY [PLACE 1 PATCH ONTO THE SKIN]

REACTIONS (29)
  - Insomnia [Unknown]
  - Affect lability [Unknown]
  - Rash [Unknown]
  - Joint range of motion decreased [Unknown]
  - Suicidal ideation [Unknown]
  - Major depression [Not Recovered/Not Resolved]
  - Drug effect incomplete [Unknown]
  - Hypoaesthesia [Unknown]
  - Gingival disorder [Unknown]
  - Arthralgia [Unknown]
  - Muscle spasms [Unknown]
  - Wound [Unknown]
  - Myalgia [Unknown]
  - Fatigue [Unknown]
  - Abdominal pain [Unknown]
  - Fall [Unknown]
  - Polyp [Unknown]
  - Gait disturbance [Unknown]
  - Diarrhoea [Not Recovered/Not Resolved]
  - Pain in extremity [Unknown]
  - Psoriasis [Unknown]
  - Joint swelling [Unknown]
  - Musculoskeletal stiffness [Unknown]
  - Anxiety [Unknown]
  - Stress [Unknown]
  - Somnolence [Unknown]
  - Irritability [Unknown]
  - Pain [Unknown]
  - Condition aggravated [Unknown]
